FAERS Safety Report 25126034 (Version 2)
Quarter: 2025Q4

REPORT INFORMATION
  Report Type: Spontaneous
  Country: US (occurrence: US)
  Receive Date: 20250326
  Receipt Date: 20251112
  Transmission Date: 20260117
  Serious: No
  Sender: BIOGEN
  Company Number: US-BIOGEN-2024BI01247393

PATIENT
  Age: 56 Year
  Sex: Male

DRUGS (15)
  1. SKYCLARYS [Suspect]
     Active Substance: OMAVELOXOLONE
     Indication: Friedreich^s ataxia
     Dates: start: 20230721
  2. SKYCLARYS [Suspect]
     Active Substance: OMAVELOXOLONE
     Dates: start: 20230721
  3. SKYCLARYS [Suspect]
     Active Substance: OMAVELOXOLONE
  4. SKYCLARYS [Suspect]
     Active Substance: OMAVELOXOLONE
  5. SKYCLARYS [Suspect]
     Active Substance: OMAVELOXOLONE
  6. SKYCLARYS [Suspect]
     Active Substance: OMAVELOXOLONE
     Dates: start: 20230721
  7. SKYCLARYS [Suspect]
     Active Substance: OMAVELOXOLONE
     Dates: start: 20230721
  8. SKYCLARYS [Suspect]
     Active Substance: OMAVELOXOLONE
     Dates: start: 20230721
  9. SKYCLARYS [Suspect]
     Active Substance: OMAVELOXOLONE
     Dates: start: 20230721
  10. SKYCLARYS [Suspect]
     Active Substance: OMAVELOXOLONE
     Dates: start: 20230721
  11. SKYCLARYS [Suspect]
     Active Substance: OMAVELOXOLONE
     Dates: start: 20230720
  12. BUPROPION [Suspect]
     Active Substance: BUPROPION
     Indication: Product used for unknown indication
  13. TRAMADOL [Suspect]
     Active Substance: TRAMADOL
     Indication: Product used for unknown indication
  14. TIZANIDINE [Suspect]
     Active Substance: TIZANIDINE
     Indication: Product used for unknown indication
  15. MELOXICAM [Suspect]
     Active Substance: MELOXICAM
     Indication: Product used for unknown indication

REACTIONS (10)
  - Depression [Unknown]
  - Muscle spasms [Unknown]
  - Pain [Unknown]
  - Gait inability [Unknown]
  - Fluid intake reduced [Unknown]
  - Product dose omission issue [Unknown]
  - Fatigue [Unknown]
  - Feeling abnormal [Unknown]
  - Poor quality sleep [Unknown]
  - Muscle atrophy [Not Recovered/Not Resolved]

NARRATIVE: CASE EVENT DATE: 20230101
